FAERS Safety Report 24943557 (Version 2)
Quarter: 2025Q3

REPORT INFORMATION
  Report Type: Report from Study
  Country: US (occurrence: US)
  Receive Date: 20250207
  Receipt Date: 20250809
  Transmission Date: 20251020
  Serious: Yes (Other)
  Sender: ALEXION PHARMACEUTICALS
  Company Number: US-AstraZeneca-CH-00800017A

PATIENT
  Sex: Female

DRUGS (2)
  1. DAPAGLIFLOZIN [Suspect]
     Active Substance: DAPAGLIFLOZIN
  2. INVOKANA [Suspect]
     Active Substance: CANAGLIFLOZIN
     Route: 065

REACTIONS (3)
  - Fungal infection [Unknown]
  - Hypersensitivity [Unknown]
  - Fungal infection [Unknown]
